FAERS Safety Report 17691348 (Version 2)
Quarter: 2020Q2

REPORT INFORMATION
  Report Type: Spontaneous
  Country: US (occurrence: US)
  Receive Date: 20200422
  Receipt Date: 20200518
  Transmission Date: 20200714
  Serious: No
  Sender: FDA-Public Use
  Company Number: US-ASTRAZENECA-2020SE49882

PATIENT
  Sex: Female
  Weight: 79.4 kg

DRUGS (1)
  1. BYDUREON BCISE [Suspect]
     Active Substance: EXENATIDE
     Indication: TYPE 2 DIABETES MELLITUS
     Dosage: UNKNOWN
     Route: 065

REACTIONS (8)
  - Incorrect dose administered by device [Unknown]
  - Device issue [Unknown]
  - Injection site erythema [Unknown]
  - Glycosylated haemoglobin increased [Unknown]
  - Injection site mass [Unknown]
  - Device delivery system issue [Unknown]
  - Injection site extravasation [Unknown]
  - Device leakage [Unknown]
